FAERS Safety Report 13642577 (Version 3)
Quarter: 2017Q3

REPORT INFORMATION
  Report Type: Spontaneous
  Country: US (occurrence: US)
  Receive Date: 20170612
  Receipt Date: 20170816
  Transmission Date: 20171127
  Serious: Yes (Hospitalization, Other)
  Sender: FDA-Public Use
  Company Number: US-ABBVIE-17K-163-2002695-00

PATIENT

DRUGS (1)
  1. HUMIRA [Suspect]
     Active Substance: ADALIMUMAB
     Indication: PRODUCT USED FOR UNKNOWN INDICATION
     Route: 058

REACTIONS (14)
  - Condition aggravated [Unknown]
  - Sjogren^s syndrome [Unknown]
  - Myelopathy [Unknown]
  - Vertigo [Unknown]
  - Systemic lupus erythematosus [Unknown]
  - Depression [Unknown]
  - PFAPA syndrome [Unknown]
  - Hand deformity [Unknown]
  - Autoimmune disorder [Unknown]
  - Rheumatoid arthritis [Unknown]
  - Raynaud^s phenomenon [Unknown]
  - Systemic scleroderma [Unknown]
  - Pain [Unknown]
  - Scleroderma [Unknown]
